FAERS Safety Report 19881059 (Version 2)
Quarter: 2021Q3

REPORT INFORMATION
  Report Type: Report from Study
  Country: FR (occurrence: FR)
  Receive Date: 20210924
  Receipt Date: 20210929
  Transmission Date: 20211014
  Serious: Yes (Other)
  Sender: FDA-Public Use
  Company Number: FR-PFIZER INC-2021603637

PATIENT
  Age: 58 Year
  Sex: Female

DRUGS (4)
  1. TUCATINIB [Suspect]
     Active Substance: TUCATINIB
     Dosage: 200 MG, 2X/DAY
     Dates: end: 20210203
  2. TRASTUZUMAB. [Suspect]
     Active Substance: TRASTUZUMAB
     Indication: RENAL CANCER
     Dosage: 600 MG, EVERY 3 WEEKS
     Route: 058
  3. TUCATINIB [Suspect]
     Active Substance: TUCATINIB
     Indication: RENAL CANCER
     Dosage: 300 MG, 2X/DAY
     Dates: start: 20210126
  4. CAPECITABINE. [Suspect]
     Active Substance: CAPECITABINE
     Indication: RENAL CANCER
     Dosage: 1000 MG/M2, 2X/DAY

REACTIONS (2)
  - Diarrhoea [Unknown]
  - Mucosal inflammation [Unknown]

NARRATIVE: CASE EVENT DATE: 20210203
